FAERS Safety Report 19251413 (Version 1)
Quarter: 2021Q2

REPORT INFORMATION
  Report Type: Spontaneous
  Country: US (occurrence: US)
  Receive Date: 20210513
  Receipt Date: 20210513
  Transmission Date: 20210717
  Serious: Yes (Other)
  Sender: FDA-Public Use
  Company Number: US-LUPIN PHARMACEUTICALS INC.-2021-06993

PATIENT
  Sex: Female
  Weight: 1.92 kg

DRUGS (8)
  1. VITAMIN K [Suspect]
     Active Substance: PHYTONADIONE
     Dosage: INTERMITTENT VITAMIN K INFUSIONUNK
     Route: 064
  2. URSODEOXYCHOLIC ACID [Suspect]
     Active Substance: URSODIOL
     Indication: PRURITUS
     Dosage: UNK
     Route: 064
  3. VITAMIN A [Suspect]
     Active Substance: VITAMIN A
     Indication: VITAMIN A DEFICIENCY
     Dosage: 100000 INTERNATIONAL UNIT
     Route: 064
  4. BETAMETHASONE. [Suspect]
     Active Substance: BETAMETHASONE
     Indication: MATERNAL THERAPY TO ENHANCE FOETAL LUNG MATURITY
     Dosage: UNK
     Route: 064
  5. VITAMIN K [Suspect]
     Active Substance: PHYTONADIONE
     Dosage: UNK
     Route: 064
  6. VITAMIN K [Suspect]
     Active Substance: PHYTONADIONE
     Indication: COAGULOPATHY
     Dosage: 5 MILLIGRAM, QD EVERY NIGHT
     Route: 064
  7. VITAMIN E [Suspect]
     Active Substance: .ALPHA.-TOCOPHEROL
     Indication: VITAMIN E DEFICIENCY
     Dosage: UNK
     Route: 064
  8. VITAMIN A [Suspect]
     Active Substance: VITAMIN A
     Dosage: 50000 INTERNATIONAL UNIT
     Route: 064

REACTIONS (4)
  - Low birth weight baby [Unknown]
  - Hyperbilirubinaemia [Unknown]
  - Premature baby [Unknown]
  - Foetal exposure during pregnancy [Unknown]
